FAERS Safety Report 6841309-1 (Version None)
Quarter: 2010Q3

REPORT INFORMATION
  Report Type: 
  Country: None (occurrence: None)
  Receive Date: 20100714
  Receipt Date: 20070820
  Transmission Date: 20110219
  Serious: No
  Sender: FDA-Public Use
  Company Number: US-PFIZER INC-2007054966

PATIENT
  Age: 60 Year
  Sex: Female
  Weight: 51.7 kg

DRUGS (13)
  1. CHANTIX [Suspect]
     Indication: SMOKING CESSATION THERAPY
     Dates: start: 20070629
  2. MAXAIR [Concomitant]
  3. ALBUTEROL [Concomitant]
  4. MONTELUKAST SODIUM [Concomitant]
  5. ATROVENT [Concomitant]
  6. PULMICORT [Concomitant]
  7. THEOPHYLLINE [Concomitant]
  8. ALLEGRA [Concomitant]
  9. VITACAL [Concomitant]
  10. LISINOPRIL [Concomitant]
  11. ATENOLOL [Concomitant]
  12. OXAPROZIN [Concomitant]
  13. HYDROCHLOROTHIAZIDE [Concomitant]

REACTIONS (3)
  - NAUSEA [None]
  - SOMNOLENCE [None]
  - VOMITING [None]
